FAERS Safety Report 21363264 (Version 1)
Quarter: 2022Q3

REPORT INFORMATION
  Report Type: Spontaneous
  Country: US (occurrence: US)
  Receive Date: 20220922
  Receipt Date: 20220922
  Transmission Date: 20221027
  Serious: Yes (Hospitalization)
  Sender: FDA-Public Use
  Company Number: US-LUPIN PHARMACEUTICALS INC.-2022-11194

PATIENT
  Age: 26 Year
  Sex: Male

DRUGS (15)
  1. LORAZEPAM [Suspect]
     Active Substance: LORAZEPAM
     Indication: Neuroleptic malignant syndrome
     Dosage: 2 MG, TID
     Route: 065
  2. LORAZEPAM [Suspect]
     Active Substance: LORAZEPAM
     Indication: Catatonia
     Dosage: 30 MG, QD (DOSE GRADUALLY INCREASED TO 30MG/DAY)
     Route: 065
  3. ZOLPIDEM [Suspect]
     Active Substance: ZOLPIDEM TARTRATE
     Indication: Catatonia
     Dosage: 10 MG
     Route: 065
  4. LORAZEPAM [Suspect]
     Active Substance: LORAZEPAM
     Indication: Catatonia
     Dosage: 30 MG, QD
     Route: 030
  5. DIAZEPAM [Suspect]
     Active Substance: DIAZEPAM
     Indication: Catatonia
     Dosage: 20 MG, BID
     Route: 065
  6. HALOPERIDOL [Concomitant]
     Active Substance: HALOPERIDOL
     Indication: Antipsychotic therapy
     Dosage: UNK
     Route: 065
  7. ARIPIPRAZOLE [Concomitant]
     Active Substance: ARIPIPRAZOLE
     Indication: Antipsychotic therapy
     Dosage: 2 MG, BID
     Route: 065
  8. OLANZAPINE [Concomitant]
     Active Substance: OLANZAPINE
     Indication: Antipsychotic therapy
     Dosage: 20 MG, DAILY, TAKEN IN THE MORNING
     Route: 048
  9. CHLORPROMAZINE [Concomitant]
     Active Substance: CHLORPROMAZINE
     Indication: Antipsychotic therapy
     Dosage: 100 MG
     Route: 030
  10. RISPERIDONE [Concomitant]
     Active Substance: RISPERIDONE
     Indication: Antipsychotic therapy
     Dosage: UNK
     Route: 065
  11. FLUPHENAZINE [Concomitant]
     Active Substance: FLUPHENAZINE
     Indication: Antipsychotic therapy
     Dosage: UNK
     Route: 065
  12. LITHIUM [Concomitant]
     Active Substance: LITHIUM
     Indication: Antipsychotic therapy
     Dosage: UNK
     Route: 065
  13. CLONAZEPAM [Concomitant]
     Active Substance: CLONAZEPAM
     Indication: Product used for unknown indication
     Dosage: 1MG IN THE MORNING AND 2MG AT BEDTIME
     Route: 065
  14. PRAZOSIN [Concomitant]
     Active Substance: PRAZOSIN
     Indication: Product used for unknown indication
     Dosage: 1 MG, TID
     Route: 065
  15. VALPROIC ACID [Concomitant]
     Active Substance: VALPROIC ACID
     Indication: Neuroleptic malignant syndrome
     Dosage: 500 MG, BID
     Route: 065

REACTIONS (2)
  - Drug ineffective for unapproved indication [Unknown]
  - Off label use [Unknown]
